FAERS Safety Report 19963391 (Version 1)
Quarter: 2021Q4

REPORT INFORMATION
  Report Type: Spontaneous
  Country: US (occurrence: US)
  Receive Date: 20211018
  Receipt Date: 20211018
  Transmission Date: 20220303
  Serious: Yes (Hospitalization)
  Sender: FDA-Public Use
  Company Number: US-MYLANLABS-2021M1072616

PATIENT
  Age: 62 Year
  Sex: Male

DRUGS (11)
  1. DEXAMETHASONE [Suspect]
     Active Substance: DEXAMETHASONE
     Indication: Plasma cell leukaemia
     Dosage: AS PART OF RVD-PACE, KVD AND KPD REGIMEN
     Route: 065
  2. POMALIDOMIDE [Suspect]
     Active Substance: POMALIDOMIDE
     Indication: Plasma cell leukaemia
     Dosage: AS PART OF KPD REGIMEN, CYCLE
     Route: 065
  3. CARFILZOMIB [Suspect]
     Active Substance: CARFILZOMIB
     Indication: Plasma cell leukaemia
     Dosage: AS PART OF KPD REGIMEN CYCLE
     Route: 065
  4. LENALIDOMIDE [Concomitant]
     Active Substance: LENALIDOMIDE
     Indication: Plasma cell leukaemia
     Dosage: AS PART OF RVD-PACE REGIMEN, CYCLE
     Route: 065
  5. BORTEZOMIB [Concomitant]
     Active Substance: BORTEZOMIB
     Indication: Plasma cell leukaemia
     Dosage: AS PART OF RVD-PACE REGIMEN, CYCLE
     Route: 065
  6. CISPLATIN [Concomitant]
     Active Substance: CISPLATIN
     Indication: Plasma cell leukaemia
     Dosage: AS PART OF RVD-PACE REGIMEN, CYCLE
     Route: 065
  7. DOXORUBICIN [Concomitant]
     Active Substance: DOXORUBICIN
     Indication: Plasma cell leukaemia
     Dosage: AS PART OF RVD-PACE REGIMEN, CYCLE
     Route: 065
  8. CYCLOPHOSPHAMIDE [Concomitant]
     Active Substance: CYCLOPHOSPHAMIDE
     Indication: Plasma cell leukaemia
     Dosage: AS PART OF RVD-PACE REGIMEN, CYCLE
     Route: 065
  9. ETOPOSIDE [Concomitant]
     Active Substance: ETOPOSIDE
     Indication: Plasma cell leukaemia
     Dosage: AS PART OF RVD-PACE REGIMEN,  CYCLE
     Route: 065
  10. ZOLEDRONIC ACID [Concomitant]
     Active Substance: ZOLEDRONIC ACID
     Indication: Bone disorder
     Dosage: UNK
     Route: 065
  11. MELPHALAN [Concomitant]
     Active Substance: MELPHALAN
     Indication: Bone marrow conditioning regimen
     Dosage: 200 MILLIGRAM/SQ. METER
     Route: 065

REACTIONS (3)
  - Thrombocytopenia [Unknown]
  - Pneumonia [Unknown]
  - Acute respiratory failure [Unknown]
